FAERS Safety Report 14330548 (Version 2)
Quarter: 2018Q2

REPORT INFORMATION
  Report Type: Report from Study
  Country: CA (occurrence: CA)
  Receive Date: 20171227
  Receipt Date: 20180428
  Transmission Date: 20180711
  Serious: Yes (Other)
  Sender: FDA-Public Use
  Company Number: CA-ROCHE-2043696

PATIENT
  Age: 20 Year
  Sex: Female

DRUGS (6)
  1. LOSEC [Concomitant]
     Active Substance: OMEPRAZOLE
  2. DIAMOX SEQUELS [Concomitant]
     Active Substance: ACETAZOLAMIDE
     Dosage: PATIENT WILL BE TAKING WITH ACTEMRA
     Route: 065
  3. VOLTAREN [Concomitant]
     Active Substance: DICLOFENAC SODIUM
  4. LYRICA [Concomitant]
     Active Substance: PREGABALIN
     Indication: HEADACHE
  5. ACTEMRA [Suspect]
     Active Substance: TOCILIZUMAB
     Indication: JUVENILE IDIOPATHIC ARTHRITIS
     Route: 042
     Dates: start: 20160420, end: 20180328
  6. ARAVA [Concomitant]
     Active Substance: LEFLUNOMIDE

REACTIONS (5)
  - Papilloedema [Unknown]
  - Joint swelling [Recovered/Resolved]
  - Arthritis [Unknown]
  - Therapeutic response decreased [Recovering/Resolving]
  - Weight increased [Unknown]

NARRATIVE: CASE EVENT DATE: 20160618
